FAERS Safety Report 4340590-0 (Version None)
Quarter: 2004Q2

REPORT INFORMATION
  Report Type: 
  Country: None (occurrence: None)
  Receive Date: 20040416
  Receipt Date: 20040416
  Transmission Date: 20050107
  Serious: Yes (Life-Threatening, Hospitalization, Disabling, Other)
  Sender: FDA-Public Use
  Company Number: None

PATIENT
  Age: 49 Year
  Sex: Male
  Weight: 60.2 kg

DRUGS (3)
  1. PAXIL [Suspect]
     Indication: DEPRESSION
     Dosage: PAXIL 1AM + 1PM
     Dates: start: 20011220, end: 20040501
  2. ATIVAN [Suspect]
     Indication: DEPRESSION
     Dosage: ATAVAN NOON
     Dates: start: 20011220, end: 20020201
  3. ATIVAN [Suspect]
     Indication: MENOPAUSE
     Dosage: ATAVAN NOON
     Dates: start: 20011220, end: 20020201

REACTIONS (10)
  - CARDIAC FAILURE CONGESTIVE [None]
  - CEREBROVASCULAR ACCIDENT [None]
  - COMA [None]
  - CONVULSION [None]
  - DIARRHOEA [None]
  - HALLUCINATION [None]
  - LETHARGY [None]
  - MYOCARDIAL INFARCTION [None]
  - OEDEMA [None]
  - RENAL FAILURE [None]
